FAERS Safety Report 8553275-1 (Version None)
Quarter: 2012Q3

REPORT INFORMATION
  Report Type: 
  Country: None (occurrence: None)
  Receive Date: 20120731
  Receipt Date: 20120720
  Transmission Date: 20120928
  Serious: Yes (Hospitalization)
  Sender: FDA-Public Use
  Company Number: JP-SANOFI-AVENTIS-2012SA035482

PATIENT
  Age: 55 Year
  Sex: Female
  Weight: 52 kg

DRUGS (20)
  1. OXALIPLATIN [Suspect]
     Dosage: INJECTION
     Route: 041
     Dates: start: 20120629, end: 20120629
  2. TRAMADOL HYDROCHLORIDE [Suspect]
     Indication: CANCER PAIN
     Route: 048
     Dates: start: 20120419
  3. OXALIPLATIN [Suspect]
     Indication: GASTRIC CANCER
     Dosage: INJECTION
     Route: 041
     Dates: start: 20120427, end: 20120427
  4. PREDNISOLONE [Suspect]
     Indication: VIITH NERVE PARALYSIS
     Route: 048
     Dates: start: 20120630
  5. ZOLPIDEM [Suspect]
     Indication: INSOMNIA
     Route: 048
     Dates: start: 20120420
  6. TS-1 [Suspect]
     Route: 048
     Dates: start: 20120629, end: 20120706
  7. OXALIPLATIN [Suspect]
     Dosage: INJECTION
     Route: 041
     Dates: start: 20120531, end: 20120531
  8. LEUCOVORIN CALCIUM [Suspect]
     Route: 048
     Dates: start: 20120629, end: 20120706
  9. TS-1 [Suspect]
     Indication: GASTRIC CANCER
     Route: 048
     Dates: start: 20120427, end: 20120503
  10. TS-1 [Suspect]
     Route: 048
     Dates: start: 20120531, end: 20120607
  11. TS-1 [Suspect]
     Route: 048
     Dates: start: 20120615, end: 20120622
  12. MAGLAX [Suspect]
     Indication: CONSTIPATION
     Route: 048
     Dates: start: 20120501
  13. LEUCOVORIN CALCIUM [Suspect]
     Route: 048
     Dates: start: 20120531, end: 20120607
  14. LEUCOVORIN CALCIUM [Suspect]
     Route: 048
     Dates: start: 20120615, end: 20120622
  15. ACETAMINOPHEN [Suspect]
     Indication: CANCER PAIN
     Route: 048
     Dates: start: 20120412
  16. WARFARIN SODIUM [Suspect]
     Indication: DEEP VEIN THROMBOSIS
     Route: 048
     Dates: start: 20120514
  17. LEUCOVORIN CALCIUM [Suspect]
     Indication: GASTRIC CANCER
     Route: 048
     Dates: start: 20120427, end: 20120503
  18. DEXALTIN [Suspect]
     Indication: STOMATITIS
     Dosage: FORM: OINTMENT , CREAM
     Route: 061
     Dates: start: 20120713
  19. OXALIPLATIN [Suspect]
     Dosage: INJECTION
     Route: 041
     Dates: start: 20120615, end: 20120615
  20. SELTOUCH [Suspect]
     Indication: OEDEMA PERIPHERAL
     Dosage: FORM: TAPE (INCLUDING POULTICE)
     Route: 061
     Dates: start: 20120514

REACTIONS (5)
  - CHOLECYSTITIS ACUTE [None]
  - DEEP VEIN THROMBOSIS [None]
  - PULMONARY ARTERY THROMBOSIS [None]
  - DECREASED APPETITE [None]
  - MALAISE [None]
